FAERS Safety Report 15006943 (Version 1)
Quarter: 2018Q2

REPORT INFORMATION
  Report Type: Report from Study
  Country: None (occurrence: US)
  Receive Date: 20180613
  Receipt Date: 20180613
  Transmission Date: 20180711
  Serious: No
  Sender: FDA-Public Use
  Company Number: US-US WORLDMEDS, LLC-USW201804-000633

PATIENT
  Age: 84 Year
  Sex: Female

DRUGS (12)
  1. LISINOPRIL. [Concomitant]
     Active Substance: LISINOPRIL
  2. FUROSEMIDE. [Concomitant]
     Active Substance: FUROSEMIDE
  3. APOKYN [Suspect]
     Active Substance: APOMORPHINE HYDROCHLORIDE
     Indication: PARKINSON^S DISEASE
     Route: 058
     Dates: start: 20180418
  4. ATENOLOL. [Suspect]
     Active Substance: ATENOLOL
  5. ASA [Concomitant]
     Active Substance: ASPIRIN
  6. COMTAN [Concomitant]
     Active Substance: ENTACAPONE
  7. AMLODIPINE [Concomitant]
     Active Substance: AMLODIPINE BESYLATE
  8. POTASSIUM [Concomitant]
     Active Substance: POTASSIUM
  9. SINEMET [Concomitant]
     Active Substance: CARBIDOPA\LEVODOPA
  10. ROPINIROLE. [Concomitant]
     Active Substance: ROPINIROLE
  11. TIGAN [Concomitant]
     Active Substance: TRIMETHOBENZAMIDE HYDROCHLORIDE
  12. LIPITOR [Concomitant]
     Active Substance: ATORVASTATIN CALCIUM

REACTIONS (1)
  - Yawning [Recovered/Resolved]

NARRATIVE: CASE EVENT DATE: 20180418
